FAERS Safety Report 6832447-8 (Version None)
Quarter: 2010Q3

REPORT INFORMATION
  Report Type: 
  Country: None (occurrence: None)
  Receive Date: 20100712
  Receipt Date: 20070309
  Transmission Date: 20110219
  Serious: No
  Sender: FDA-Public Use
  Company Number: US-PFIZER INC-2007020245

PATIENT
  Sex: Male
  Weight: 70.31 kg

DRUGS (7)
  1. CHANTIX [Suspect]
     Indication: SMOKING CESSATION THERAPY
     Dates: start: 20070101
  2. ATENOLOL [Concomitant]
  3. HYDROCHLOROTHIAZIDE [Concomitant]
  4. LISINOPRIL [Concomitant]
  5. NIFEDIPINE [Concomitant]
  6. FOLIC ACID [Concomitant]
  7. ACETYLSALICYLIC ACID [Concomitant]

REACTIONS (2)
  - ARTHRALGIA [None]
  - TENDERNESS [None]
